FAERS Safety Report 10983335 (Version 1)
Quarter: 2015Q2

REPORT INFORMATION
  Report Type: Spontaneous
  Country: US (occurrence: None)
  Receive Date: 20150402
  Receipt Date: 20150402
  Transmission Date: 20150821
  Serious: Yes (Hospitalization, Other)
  Sender: FDA-Public Use
  Company Number: None

PATIENT
  Age: 65 Year
  Sex: Male
  Weight: 95.26 kg

DRUGS (8)
  1. TRAMADOL [Suspect]
     Active Substance: TRAMADOL
     Indication: FIBROMYALGIA
     Dosage: 8 PILLS
     Route: 048
     Dates: start: 20070601, end: 20150318
  2. MELOXICAM. [Concomitant]
     Active Substance: MELOXICAM
  3. SEA ALOE [Concomitant]
  4. TAMULOSIN [Concomitant]
     Active Substance: TAMSULOSIN
  5. FISH OIL [Concomitant]
     Active Substance: FISH OIL
  6. VIT B [Concomitant]
     Active Substance: VITAMINS
  7. MULTI VIT [Concomitant]
  8. LISINOPRIL. [Concomitant]
     Active Substance: LISINOPRIL

REACTIONS (7)
  - Drug dependence [None]
  - Sexual dysfunction [None]
  - Psoriasis [None]
  - Insomnia [None]
  - Urinary tract disorder [None]
  - Withdrawal syndrome [None]
  - Economic problem [None]

NARRATIVE: CASE EVENT DATE: 20150310
